FAERS Safety Report 16852046 (Version 1)
Quarter: 2019Q3

REPORT INFORMATION
  Report Type: Spontaneous
  Country: ID (occurrence: ID)
  Receive Date: 20190925
  Receipt Date: 20190925
  Transmission Date: 20191005
  Serious: Yes (Death)
  Sender: FDA-Public Use
  Company Number: ID-ASTRAZENECA-2019SF35037

PATIENT

DRUGS (1)
  1. BRILINTA [Suspect]
     Active Substance: TICAGRELOR
     Indication: ACUTE CORONARY SYNDROME
     Dosage: 180 MG AS LOADING DOSE
     Route: 048

REACTIONS (1)
  - Haemorrhage intracranial [Fatal]
